FAERS Safety Report 8061819-1 (Version None)
Quarter: 2012Q1

REPORT INFORMATION
  Report Type: 
  Country: None (occurrence: None)
  Receive Date: 20120123
  Receipt Date: 20120113
  Transmission Date: 20120608
  Serious: No
  Sender: FDA-Public Use
  Company Number: US-PFIZER INC-2012009764

PATIENT
  Sex: Male
  Weight: 87.075 kg

DRUGS (4)
  1. PRISTIQ [Suspect]
     Indication: DEPRESSION
     Dosage: 50 MG, DAILY
     Route: 048
     Dates: start: 20110101
  2. ZESTORETIC [Concomitant]
     Indication: HYPERTENSION
     Dosage: 20/25 MG DAILY
  3. FLOMAX [Concomitant]
     Indication: PROSTATIC DISORDER
     Dosage: 0.4 MG, DAILY
  4. CRESTOR [Concomitant]
     Indication: BLOOD CHOLESTEROL ABNORMAL
     Dosage: 40 MG, DAILY
     Route: 048

REACTIONS (3)
  - MEDICATION RESIDUE [None]
  - MOOD ALTERED [None]
  - DRUG INEFFECTIVE [None]
